FAERS Safety Report 12068876 (Version 1)
Quarter: 2016Q1

REPORT INFORMATION
  Report Type: Report from Study
  Country: MX (occurrence: MX)
  Receive Date: 20160211
  Receipt Date: 20160211
  Transmission Date: 20160526
  Serious: Yes (Other)
  Sender: FDA-Public Use
  Company Number: MX-BRISTOL-MYERS SQUIBB COMPANY-12759833

PATIENT
  Age: 32 Year
  Sex: Female

DRUGS (4)
  1. MURAGLITAZAR. [Suspect]
     Active Substance: MURAGLITAZAR
     Indication: TYPE 2 DIABETES MELLITUS
     Dosage: UNK
     Route: 048
     Dates: start: 20040915, end: 20041108
  2. METFORMIN HYDROCHLORIDE. [Suspect]
     Active Substance: METFORMIN HYDROCHLORIDE
     Indication: TYPE 2 DIABETES MELLITUS
     Dosage: 1500 MG, QD
     Route: 048
     Dates: start: 200401, end: 20041108
  3. DIOSMIN [Concomitant]
     Active Substance: DIOSMIN
     Indication: PRODUCT USED FOR UNKNOWN INDICATION
     Dosage: 450 MG, QD
     Route: 048
     Dates: start: 200407, end: 20041108
  4. HESPERIDIN [Concomitant]
     Active Substance: HESPERIDIN
     Indication: PRODUCT USED FOR UNKNOWN INDICATION
     Dosage: 50 MG, QD
     Route: 048
     Dates: start: 200407, end: 20041108

REACTIONS (4)
  - Pregnancy on contraceptive [Recovered/Resolved]
  - Caesarean section [Unknown]
  - Hypertension [Unknown]
  - Normal newborn [Unknown]

NARRATIVE: CASE EVENT DATE: 20050709
